FAERS Safety Report 16266245 (Version 1)
Quarter: 2019Q2

REPORT INFORMATION
  Report Type: Spontaneous
  Country: FR (occurrence: FR)
  Receive Date: 20190502
  Receipt Date: 20190502
  Transmission Date: 20190711
  Serious: Yes (Life-Threatening, Hospitalization, Congenital Anomaly, Other)
  Sender: FDA-Public Use
  Company Number: FR-MYLANLABS-2018M1022168

PATIENT
  Sex: Female
  Weight: 2.78 kg

DRUGS (1)
  1. AZATHIOPRINE. [Suspect]
     Active Substance: AZATHIOPRINE
     Indication: CROHN^S DISEASE
     Dosage: 100 MILLIGRAM, QD (THROUGHOUT PREGNANCY)
     Route: 064

REACTIONS (4)
  - Combined immunodeficiency [Recovered/Resolved]
  - Lymphopenia [Recovered/Resolved]
  - Live birth [Unknown]
  - Foetal exposure during pregnancy [Recovered/Resolved]
